FAERS Safety Report 4317078-6 (Version None)
Quarter: 2004Q1

REPORT INFORMATION
  Report Type: 
  Country: None (occurrence: None)
  Receive Date: 20040312
  Receipt Date: 20040224
  Transmission Date: 20041129
  Serious: Yes (Hospitalization)
  Sender: FDA-Public Use
  Company Number: 8003398

PATIENT
  Age: 39 Year
  Sex: Female

DRUGS (8)
  1. KEPPRA [Suspect]
     Indication: EPILEPSY
     Dosage: 1500 MG PO
     Route: 048
     Dates: start: 20030501
  2. VINCRISTINE [Suspect]
     Indication: CHEMOTHERAPY
     Dates: start: 20021206, end: 20021207
  3. VINCRISTINE [Suspect]
     Indication: CHEMOTHERAPY
     Dates: start: 20030101, end: 20030101
  4. CECENU [Suspect]
     Indication: CHEMOTHERAPY
     Dates: start: 20021206, end: 20021207
  5. CECENU [Suspect]
     Indication: CHEMOTHERAPY
     Dates: start: 20030101, end: 20030101
  6. NATULAN [Suspect]
     Indication: CHEMOTHERAPY
     Dates: start: 20021206, end: 20021207
  7. ZOFRAN [Suspect]
  8. VERGENTAN [Suspect]

REACTIONS (5)
  - ABDOMINAL WALL DISORDER [None]
  - ALANINE AMINOTRANSFERASE INCREASED [None]
  - ASPARTATE AMINOTRANSFERASE INCREASED [None]
  - BLOOD ALKALINE PHOSPHATASE INCREASED [None]
  - GAMMA-GLUTAMYLTRANSFERASE INCREASED [None]
